FAERS Safety Report 14715895 (Version 5)
Quarter: 2023Q1

REPORT INFORMATION
  Report Type: Spontaneous
  Country: US (occurrence: None)
  Receive Date: 20180404
  Receipt Date: 20230317
  Transmission Date: 20230418
  Serious: Yes (Other)
  Sender: FDA-Public Use
  Company Number: 2018SE41533

PATIENT
  Age: 924 Month
  Sex: Male
  Weight: 97.5 kg

DRUGS (32)
  1. NEXIUM [Suspect]
     Active Substance: ESOMEPRAZOLE MAGNESIUM
     Route: 048
     Dates: start: 199901, end: 201606
  2. NEXIUM 24HR [Suspect]
     Active Substance: ESOMEPRAZOLE MAGNESIUM
     Route: 048
     Dates: start: 199901, end: 201606
  3. PRILOSEC [Suspect]
     Active Substance: OMEPRAZOLE MAGNESIUM
     Route: 048
     Dates: start: 199901, end: 201606
  4. PRILOSEC [Suspect]
     Active Substance: OMEPRAZOLE MAGNESIUM
     Route: 048
     Dates: start: 200001, end: 201712
  5. PRILOSEC OTC [Suspect]
     Active Substance: OMEPRAZOLE MAGNESIUM
     Indication: Gastrooesophageal reflux disease
     Route: 048
     Dates: start: 199901, end: 201606
  6. PRILOSEC OTC [Suspect]
     Active Substance: OMEPRAZOLE MAGNESIUM
     Indication: Gastrooesophageal reflux disease
     Route: 048
     Dates: start: 200001, end: 201712
  7. PRILOSEC OTC [Suspect]
     Active Substance: OMEPRAZOLE MAGNESIUM
     Indication: Gastrooesophageal reflux disease
     Route: 048
     Dates: start: 20140416, end: 20140819
  8. PRILOSEC OTC [Suspect]
     Active Substance: OMEPRAZOLE MAGNESIUM
     Indication: Gastrooesophageal reflux disease
     Route: 048
     Dates: start: 2003, end: 2009
  9. DEXILANT [Suspect]
     Active Substance: DEXLANSOPRAZOLE
     Dates: start: 199901, end: 201606
  10. PREVACID [Suspect]
     Active Substance: LANSOPRAZOLE
     Dates: start: 199901, end: 201606
  11. PREVACID [Suspect]
     Active Substance: LANSOPRAZOLE
     Dates: start: 200001, end: 201712
  12. PREVACID 24 HR [Suspect]
     Active Substance: LANSOPRAZOLE
     Indication: Gastrooesophageal reflux disease
     Dates: start: 199901, end: 201606
  13. PREVACID 24 HR [Suspect]
     Active Substance: LANSOPRAZOLE
     Indication: Gastrooesophageal reflux disease
     Dates: start: 200001, end: 201712
  14. PREVACID 24 HR [Suspect]
     Active Substance: LANSOPRAZOLE
     Indication: Gastrooesophageal reflux disease
     Dates: start: 2009, end: 2014
  15. PROTONIX [Suspect]
     Active Substance: PANTOPRAZOLE SODIUM
     Dates: start: 199901, end: 201606
  16. PROTONIX [Suspect]
     Active Substance: PANTOPRAZOLE SODIUM
     Dates: start: 200001, end: 201712
  17. ZESTRIL [Concomitant]
     Active Substance: LISINOPRIL
  18. CLARITIN [Concomitant]
     Active Substance: LORATADINE
  19. COZAAR [Concomitant]
     Active Substance: LOSARTAN POTASSIUM
  20. PROSCAR [Concomitant]
     Active Substance: FINASTERIDE
  21. ANASPAZ [Concomitant]
     Active Substance: HYOSCYAMINE SULFATE
  22. ZOCOR [Concomitant]
     Active Substance: SIMVASTATIN
  23. TYLENOL [Concomitant]
     Active Substance: ACETAMINOPHEN
  24. CELEBREX [Concomitant]
     Active Substance: CELECOXIB
  25. VOLTAREN [Concomitant]
     Active Substance: DICLOFENAC SODIUM
  26. ALUMINIUM HYDROXIDE/TRIAMCINOLONE/SALICYLAMIDE/ASCORBIC ACID [Concomitant]
  27. DILTIAZEM [Concomitant]
     Active Substance: DILTIAZEM
  28. DOXAZOSIN [Concomitant]
     Active Substance: DOXAZOSIN MESYLATE
  29. RAPAFLO [Concomitant]
     Active Substance: SILODOSIN
  30. AMLODIPINE BESYLATE [Concomitant]
     Active Substance: AMLODIPINE BESYLATE
  31. CARVEDILOL [Concomitant]
     Active Substance: CARVEDILOL
  32. VITAMIN C [Concomitant]
     Active Substance: ASCORBIC ACID

REACTIONS (5)
  - Chronic kidney disease [Not Recovered/Not Resolved]
  - Acute kidney injury [Unknown]
  - Renal failure [Unknown]
  - Nephrogenic anaemia [Unknown]
  - Renal injury [Unknown]

NARRATIVE: CASE EVENT DATE: 20140401
